FAERS Safety Report 8895960 (Version 2)
Quarter: 2013Q2

REPORT INFORMATION
  Report Type: Report from Study
  Country: US (occurrence: US)
  Receive Date: 20121108
  Receipt Date: 20130417
  Transmission Date: 20140414
  Serious: Yes (Hospitalization)
  Sender: FDA-Public Use
  Company Number: US-NAPPMUNDI-USA-2012-0092525

PATIENT
  Age: 56 Year
  Sex: Female
  Weight: 82.09 kg

DRUGS (1)
  1. OXYCONTIN (NDA 22-272) [Suspect]
     Indication: PAIN
     Dosage: 40 MG, Q12H
     Route: 048
     Dates: start: 20090714

REACTIONS (3)
  - Neuromyelitis optica [Unknown]
  - Pain [Unknown]
  - Drug effect decreased [Recovered/Resolved]
